FAERS Safety Report 8190030-9 (Version None)
Quarter: 2012Q1

REPORT INFORMATION
  Report Type: 
  Country: None (occurrence: None)
  Receive Date: 20120221
  Receipt Date: 20120110
  Transmission Date: 20120608
  Serious: No
  Sender: FDA-Public Use
  Company Number: 1000026960

PATIENT
  Age: 56 Year
  Sex: Female

DRUGS (11)
  1. VIIBRYD [Suspect]
     Indication: MAJOR DEPRESSION
     Dosage: 10 MG (10 MG, 1 IN  1 D),ORAL
     Route: 048
     Dates: start: 20120107
  2. VIIBRYD [Suspect]
     Indication: GENERALISED ANXIETY DISORDER
     Dosage: 10 MG (10 MG, 1 IN  1 D),ORAL
     Route: 048
     Dates: start: 20120107
  3. TRAZODONE (TRAZODONE) (TRAZODONE) [Concomitant]
  4. VIIBRYD [Suspect]
     Indication: GENERALISED ANXIETY DISORDER
     Dosage: 10 MG (10MG, 1 IN 1 D), ORAL
     Route: 048
     Dates: start: 20111222, end: 20111225
  5. VIIBRYD [Suspect]
     Indication: MAJOR DEPRESSION
     Dosage: 10 MG (10MG, 1 IN 1 D), ORAL
     Route: 048
     Dates: start: 20111222, end: 20111225
  6. LAMICTAL (LAMOTRIGINE) (LAMOTRGINE) [Concomitant]
  7. ATIVAN [Concomitant]
  8. ZOLOFT [Suspect]
     Indication: MAJOR DEPRESSION
     Dosage: 100 MG (100 MG, 1 IN 1 D), ORAL; 50 MG (50 MG, 1 IN 1 D),ORAL
     Route: 048
     Dates: start: 20120107
  9. ZOLOFT [Suspect]
     Indication: GENERALISED ANXIETY DISORDER
     Dosage: 100 MG (100 MG, 1 IN 1 D), ORAL; 50 MG (50 MG, 1 IN 1 D),ORAL
     Route: 048
     Dates: start: 20120107
  10. ZOLOFT [Suspect]
     Indication: MAJOR DEPRESSION
     Dosage: 100 MG (100 MG, 1 IN 1 D), ORAL; 50 MG (50 MG, 1 IN 1 D),ORAL
     Route: 048
     Dates: end: 20120106
  11. ZOLOFT [Suspect]
     Indication: GENERALISED ANXIETY DISORDER
     Dosage: 100 MG (100 MG, 1 IN 1 D), ORAL; 50 MG (50 MG, 1 IN 1 D),ORAL
     Route: 048
     Dates: end: 20120106

REACTIONS (2)
  - CONFUSIONAL STATE [None]
  - ANXIETY [None]
